FAERS Safety Report 11109424 (Version 1)
Quarter: 2015Q2

REPORT INFORMATION
  Report Type: Spontaneous
  Country: US (occurrence: US)
  Receive Date: 20150513
  Receipt Date: 20150513
  Transmission Date: 20150821
  Serious: Yes (Other)
  Sender: FDA-Public Use
  Company Number: US-PFIZER INC-2015158133

PATIENT
  Sex: Female

DRUGS (2)
  1. SERTRALINE HCL [Suspect]
     Active Substance: SERTRALINE HYDROCHLORIDE
     Indication: HOT FLUSH
     Dosage: 25 MG, UNK
     Dates: start: 20150501, end: 201505
  2. SERTRALINE HCL [Suspect]
     Active Substance: SERTRALINE HYDROCHLORIDE
     Indication: INSOMNIA
     Dosage: 45 MG, UNK
     Dates: start: 201505, end: 20150504

REACTIONS (3)
  - Drug withdrawal syndrome [Unknown]
  - Mania [Unknown]
  - Irritability [Unknown]

NARRATIVE: CASE EVENT DATE: 201505
